FAERS Safety Report 8087188-9 (Version None)
Quarter: 2012Q1

REPORT INFORMATION
  Report Type: 
  Country: None (occurrence: None)
  Receive Date: 20120128
  Receipt Date: 20110425
  Transmission Date: 20120608
  Serious: No
  Sender: FDA-Public Use
  Company Number: US-ABBOTT-11P-163-0719480-00

PATIENT
  Age: 58 Year
  Sex: Female

DRUGS (3)
  1. MOTRIN [Concomitant]
     Indication: PAIN
  2. HUMIRA [Suspect]
     Indication: PSORIATIC ARTHROPATHY
     Dates: start: 20110221
  3. MICARDIS HCT [Concomitant]
     Indication: HYPERTENSION

REACTIONS (5)
  - DIVERTICULITIS [None]
  - DIARRHOEA [None]
  - ABDOMINAL PAIN [None]
  - NAUSEA [None]
  - MUSCLE SPASMS [None]
